FAERS Safety Report 4464868-5 (Version None)
Quarter: 2004Q4

REPORT INFORMATION
  Report Type: 
  Country: None (occurrence: None)
  Receive Date: 20041004
  Receipt Date: 20031218
  Transmission Date: 20050328
  Serious: No
  Sender: FDA-Public Use
  Company Number: 356695

PATIENT
  Age: 53 Year
  Sex: Female

DRUGS (7)
  1. COREG [Suspect]
     Dosage: 3.125MG TWICE PER DAY
     Route: 048
     Dates: start: 20031025
  2. ALTACE [Concomitant]
  3. ALDACTONE [Concomitant]
  4. LUVOX [Concomitant]
  5. ZYPREXA [Concomitant]
  6. LEVAQUIN [Concomitant]
     Dates: start: 20031217
  7. PREDNISONE [Concomitant]

REACTIONS (1)
  - ASTHENIA [None]
